FAERS Safety Report 12346380 (Version 1)
Quarter: 2016Q2

REPORT INFORMATION
  Report Type: Spontaneous
  Country: US (occurrence: US)
  Receive Date: 20160509
  Receipt Date: 20160509
  Transmission Date: 20160815
  Serious: Yes (Other)
  Sender: FDA-Public Use
  Company Number: US-009507513-1605USA003801

PATIENT
  Age: 50 Year
  Sex: Female

DRUGS (1)
  1. GRASTEK [Suspect]
     Active Substance: PHLEUM PRATENSE POLLEN
     Indication: RHINITIS ALLERGIC
     Route: 060

REACTIONS (3)
  - Urticaria [Recovering/Resolving]
  - Angioedema [Recovering/Resolving]
  - Pruritus [Recovering/Resolving]
